FAERS Safety Report 17020850 (Version 2)
Quarter: 2019Q4

REPORT INFORMATION
  Report Type: Spontaneous
  Country: US (occurrence: US)
  Receive Date: 20191112
  Receipt Date: 20191129
  Transmission Date: 20200122
  Serious: Yes (Life-Threatening, Other)
  Sender: FDA-Public Use
  Company Number: US-SYNEX-T201907335

PATIENT
  Sex: Female

DRUGS (3)
  1. INOMAX [Suspect]
     Active Substance: NITRIC OXIDE
     Indication: OXYGEN SATURATION DECREASED
     Dosage: 30 PPM
     Route: 065
     Dates: start: 20191030, end: 20191030
  2. INOMAX [Suspect]
     Active Substance: NITRIC OXIDE
     Indication: NEWBORN PERSISTENT PULMONARY HYPERTENSION
  3. INOMAX [Suspect]
     Active Substance: NITRIC OXIDE
     Indication: PNEUMOTHORAX

REACTIONS (3)
  - Hypoxia [Recovering/Resolving]
  - Bradycardia [Recovering/Resolving]
  - Device malfunction [Unknown]

NARRATIVE: CASE EVENT DATE: 20191030
